FAERS Safety Report 9345739 (Version 1)
Quarter: 2013Q2

REPORT INFORMATION
  Report Type: Spontaneous
  Country: US (occurrence: US)
  Receive Date: 20130613
  Receipt Date: 20130613
  Transmission Date: 20140414
  Serious: No
  Sender: FDA-Public Use
  Company Number: US-PFIZER INC-2013175801

PATIENT
  Age: 62 Year
  Sex: Female

DRUGS (1)
  1. NORVASC [Suspect]
     Indication: HYPERTENSION
     Dosage: 5 MG, 1X/DAY
     Route: 048
     Dates: start: 20130609, end: 20130610

REACTIONS (6)
  - Hypoaesthesia [Recovering/Resolving]
  - Presyncope [Recovering/Resolving]
  - Paraesthesia [Recovering/Resolving]
  - Paraesthesia [Recovering/Resolving]
  - Paraesthesia [Recovering/Resolving]
  - Dizziness [Recovering/Resolving]
